FAERS Safety Report 8328693-7 (Version None)
Quarter: 2012Q2

REPORT INFORMATION
  Report Type: 
  Country: None (occurrence: None)
  Receive Date: 20120430
  Receipt Date: 20120412
  Transmission Date: 20120825
  Serious: Yes (Disabling)
  Sender: FDA-Public Use
  Company Number: 2012MA004756

PATIENT
  Sex: Female

DRUGS (1)
  1. CARBIDOPA AND LEVODOPA [Suspect]
     Indication: PARKINSON'S DISEASE
     Dosage: TID;PO
     Route: 048

REACTIONS (3)
  - MOBILITY DECREASED [None]
  - ABASIA [None]
  - MUSCULOSKELETAL STIFFNESS [None]
